FAERS Safety Report 16326332 (Version 1)
Quarter: 2019Q2

REPORT INFORMATION
  Report Type: Report from Study
  Country: US (occurrence: US)
  Receive Date: 20190517
  Receipt Date: 20190517
  Transmission Date: 20190711
  Serious: Yes (Death)
  Sender: FDA-Public Use
  Company Number: US-PFIZER INC-2019205482

PATIENT

DRUGS (3)
  1. FENTANYL CITRATE. [Suspect]
     Active Substance: FENTANYL CITRATE
     Dosage: UNK
  2. HEROIN [Concomitant]
     Active Substance: DIAMORPHINE
     Dosage: UNK
  3. METHAMPHETAMINE HCL [Suspect]
     Active Substance: METHAMPHETAMINE HYDROCHLORIDE
     Dosage: UNK

REACTIONS (2)
  - Overdose [Fatal]
  - Drug use disorder [Fatal]
